FAERS Safety Report 5620205-1 (Version None)
Quarter: 2008Q1

REPORT INFORMATION
  Report Type: 
  Country: None (occurrence: None)
  Receive Date: 20080208
  Receipt Date: 20080128
  Transmission Date: 20080703
  Serious: Yes (Other)
  Sender: FDA-Public Use
  Company Number: CA-GENENTECH-251352

PATIENT
  Sex: Female
  Weight: 65.896 kg

DRUGS (15)
  1. RITUXAN [Suspect]
     Indication: B-CELL LYMPHOMA
     Dosage: 610 MG, Q4W
     Route: 042
     Dates: start: 20060831
  2. RITUXAN [Suspect]
     Dosage: UNK, Q3M
     Dates: start: 20070821
  3. FLUDARABINE [Suspect]
     Indication: B-CELL LYMPHOMA
     Dosage: 20 MG, Q4W
     Route: 042
     Dates: start: 20060831, end: 20070124
  4. MITOXANTRONE [Suspect]
     Indication: B-CELL LYMPHOMA
     Dosage: 13 MG, Q4W
     Route: 042
     Dates: start: 20060831, end: 20070124
  5. DEXAMETHASONE TAB [Concomitant]
     Indication: DRUG USE FOR UNKNOWN INDICATION
     Dates: start: 20060831, end: 20070124
  6. TRIMETHOPRIM + SULFAMETHOXAZOLE [Concomitant]
     Indication: DRUG USE FOR UNKNOWN INDICATION
     Dates: start: 20061121
  7. PROCHLORPERAZINE [Concomitant]
     Indication: DRUG USE FOR UNKNOWN INDICATION
     Dates: start: 20060831, end: 20070124
  8. ALLOPURINOL [Concomitant]
     Indication: DRUG USE FOR UNKNOWN INDICATION
     Dates: start: 20060831, end: 20061121
  9. REMERON [Concomitant]
     Indication: DRUG USE FOR UNKNOWN INDICATION
  10. K-DUR 10 [Concomitant]
     Indication: DRUG USE FOR UNKNOWN INDICATION
  11. ATIVAN [Concomitant]
     Indication: DRUG USE FOR UNKNOWN INDICATION
  12. COLACE [Concomitant]
     Indication: DRUG USE FOR UNKNOWN INDICATION
  13. SENOKOT [Concomitant]
     Indication: DRUG USE FOR UNKNOWN INDICATION
  14. KYTRIL [Concomitant]
     Indication: DRUG USE FOR UNKNOWN INDICATION
     Dates: start: 20060831, end: 20070124
  15. MICARDIS HCT [Concomitant]
     Indication: DRUG USE FOR UNKNOWN INDICATION

REACTIONS (2)
  - NEUTROPENIA [None]
  - RENAL FAILURE [None]
